FAERS Safety Report 18032651 (Version 1)
Quarter: 2020Q3

REPORT INFORMATION
  Report Type: Spontaneous
  Country: CN (occurrence: CN)
  Receive Date: 20200716
  Receipt Date: 20200716
  Transmission Date: 20201103
  Serious: Yes (Hospitalization, Other)
  Sender: FDA-Public Use
  Company Number: CN-ELI_LILLY_AND_COMPANY-CN202007002788

PATIENT
  Age: 16 Year
  Sex: Female
  Weight: 45 kg

DRUGS (2)
  1. OLANZAPINE DR REDDY [Suspect]
     Active Substance: OLANZAPINE
     Indication: AFFECTIVE DISORDER
     Dosage: 7.5 MG, DAILY
     Route: 048
     Dates: start: 20200607, end: 20200622
  2. PROZAC [Suspect]
     Active Substance: FLUOXETINE HYDROCHLORIDE
     Indication: AFFECTIVE DISORDER
     Dosage: 7.5 MG, DAILY
     Route: 048
     Dates: start: 20200607, end: 20200623

REACTIONS (5)
  - Intentional self-injury [Unknown]
  - Alanine aminotransferase increased [Unknown]
  - Affect lability [Unknown]
  - Aspartate aminotransferase increased [Unknown]
  - Affective disorder [Unknown]

NARRATIVE: CASE EVENT DATE: 20200623
